FAERS Safety Report 12710328 (Version 2)
Quarter: 2016Q4

REPORT INFORMATION
  Report Type: Report from Study
  Country: US (occurrence: US)
  Receive Date: 20160902
  Receipt Date: 20161012
  Transmission Date: 20170207
  Serious: No
  Sender: FDA-Public Use
  Company Number: PHEH2016US022066

PATIENT
  Age: 65 Year
  Sex: Female
  Weight: 63.39 kg

DRUGS (1)
  1. COSENTYX [Suspect]
     Active Substance: SECUKINUMAB
     Indication: PSORIASIS
     Dosage: 300 MG, QMO
     Route: 058
     Dates: start: 20160831

REACTIONS (3)
  - Onychomycosis [Unknown]
  - Onycholysis [Unknown]
  - Psoriasis [Unknown]

NARRATIVE: CASE EVENT DATE: 20160914
